FAERS Safety Report 23058210 (Version 1)
Quarter: 2023Q4

REPORT INFORMATION
  Report Type: Spontaneous
  Country: US (occurrence: None)
  Receive Date: 20231011
  Receipt Date: 20231011
  Transmission Date: 20240110
  Serious: Yes (Other)
  Sender: FDA-Public Use
  Company Number: None

PATIENT
  Age: 33 Year
  Sex: Female
  Weight: 78.75 kg

DRUGS (3)
  1. ERENUMAB [Suspect]
     Active Substance: ERENUMAB
     Indication: Migraine
     Dosage: OTHER FREQUENCY : MONTHLY;?
     Route: 058
     Dates: start: 20181001, end: 20190101
  2. GALCANEZUMAB [Suspect]
     Active Substance: GALCANEZUMAB
     Indication: Migraine
     Dosage: OTHER FREQUENCY : LOADING DOSE;?
     Route: 058
     Dates: end: 20190131
  3. FREMANEZUMAB [Concomitant]
     Active Substance: FREMANEZUMAB

REACTIONS (2)
  - Alopecia [None]
  - Migraine [None]

NARRATIVE: CASE EVENT DATE: 20181001
